FAERS Safety Report 13345944 (Version 1)
Quarter: 2017Q1

REPORT INFORMATION
  Report Type: Spontaneous
  Country: US (occurrence: US)
  Receive Date: 20170317
  Receipt Date: 20170317
  Transmission Date: 20170428
  Serious: No
  Sender: FDA-Public Use
  Company Number: None

PATIENT
  Age: 71 Year
  Sex: Female
  Weight: 83.99 kg

DRUGS (23)
  1. MAGNESIUM [Concomitant]
     Active Substance: MAGNESIUM
  2. VITAMIN E [Concomitant]
     Active Substance: .ALPHA.-TOCOPHEROL
  3. ZYFLAMEND [Concomitant]
  4. C-PAP MACHINE [Concomitant]
     Active Substance: DEVICE
  5. CARVEDILOL. [Concomitant]
     Active Substance: CARVEDILOL
  6. B-6 [Concomitant]
  7. LIPITOR [Suspect]
     Active Substance: ATORVASTATIN CALCIUM
     Indication: BLOOD CHOLESTEROL ABNORMAL
     Dosage: 40MG 30 AT BEDTIME (1) MOUTH
     Route: 048
     Dates: start: 20170306, end: 20170308
  8. ESTRADIOL. [Concomitant]
     Active Substance: ESTRADIOL
  9. METFORMIN SCL ER [Concomitant]
  10. SUPER EFA^S [Concomitant]
  11. PROGESTERONE. [Concomitant]
     Active Substance: PROGESTERONE
  12. PROBIOTIC [Concomitant]
     Active Substance: PROBIOTICS NOS
  13. LISINOPRIL. [Concomitant]
     Active Substance: LISINOPRIL
  14. CRANBERRY. [Concomitant]
     Active Substance: CRANBERRY
  15. VITAMIN D3 [Concomitant]
     Active Substance: CHOLECALCIFEROL
  16. ALKA-BALANCE [Concomitant]
  17. ASTRAXANTHIN [Concomitant]
  18. SPIRONOLACTONE. [Concomitant]
     Active Substance: SPIRONOLACTONE
  19. VITAMIN C [Concomitant]
     Active Substance: ASCORBIC ACID
  20. MULTI VITAMIN [Concomitant]
     Active Substance: VITAMINS
  21. POTASSIUM [Concomitant]
     Active Substance: POTASSIUM
  22. COQ10 LIQUID [Concomitant]
  23. B-1 [Concomitant]

REACTIONS (4)
  - Pruritus generalised [None]
  - Skin odour abnormal [None]
  - Pruritus [None]
  - Urine odour abnormal [None]

NARRATIVE: CASE EVENT DATE: 20170306
